FAERS Safety Report 7677068-2 (Version None)
Quarter: 2011Q3

REPORT INFORMATION
  Report Type: 
  Country: None (occurrence: None)
  Receive Date: 20110811
  Receipt Date: 20110729
  Transmission Date: 20111222
  Serious: Yes (Hospitalization)
  Sender: FDA-Public Use
  Company Number: DE-ELI_LILLY_AND_COMPANY-DE201108000100

PATIENT
  Sex: Female

DRUGS (8)
  1. FORTEO [Suspect]
     Indication: OSTEOPOROSIS
     Dosage: UNK, QD
     Route: 058
     Dates: start: 20100322
  2. MARCUMAR [Concomitant]
     Dosage: UNK
     Dates: start: 20040101
  3. NITRO                              /00003201/ [Concomitant]
  4. DIURETICS [Concomitant]
  5. HEPARIN [Concomitant]
  6. FERROUS SULFATE TAB [Concomitant]
  7. CALCIUM CARBONATE [Concomitant]
  8. VITAMIN D [Concomitant]

REACTIONS (1)
  - THROMBOSIS [None]
